FAERS Safety Report 7808167-X (Version None)
Quarter: 2011Q4

REPORT INFORMATION
  Report Type: 
  Country: None (occurrence: None)
  Receive Date: 20111011
  Receipt Date: 20111006
  Transmission Date: 20120403
  Serious: Yes (Disabling)
  Sender: FDA-Public Use
  Company Number: MX-MERCK-1110MEX00008

PATIENT
  Age: 57 Year
  Sex: Male
  Weight: 70 kg

DRUGS (3)
  1. DUTASTERIDE [Concomitant]
     Indication: PROSTATIC DISORDER
     Route: 065
     Dates: start: 20110901
  2. METFORMIN [Concomitant]
     Indication: DIABETES MELLITUS
     Route: 048
     Dates: start: 20110901
  3. JANUMET [Suspect]
     Indication: DIABETES MELLITUS
     Route: 048
     Dates: start: 20110901, end: 20110901

REACTIONS (5)
  - ABASIA [None]
  - HYPOAESTHESIA [None]
  - PELVIC PAIN [None]
  - OVERDOSE [None]
  - PARAESTHESIA [None]
